FAERS Safety Report 8854258 (Version 1)
Quarter: 2012Q4

REPORT INFORMATION
  Report Type: Spontaneous
  Country: US (occurrence: None)
  Receive Date: 20121022
  Receipt Date: 20121022
  Transmission Date: 20130627
  Serious: No
  Sender: FDA-Public Use
  Company Number: None

PATIENT
  Age: 66 Year
  Sex: Male
  Weight: 88.6 kg

DRUGS (2)
  1. SIMVASTATIN [Suspect]
     Route: 048
     Dates: start: 20070822, end: 20120813
  2. FENOFIBRATE [Suspect]
     Route: 048
     Dates: start: 20040305, end: 20120813

REACTIONS (1)
  - Pancreatitis [None]
